FAERS Safety Report 5232173-5 (Version None)
Quarter: 2007Q1

REPORT INFORMATION
  Report Type: 
  Country: None (occurrence: None)
  Receive Date: 20061205
  Receipt Date: 20060825
  Transmission Date: 20070707
  Serious: No
  Sender: FDA-Public Use
  Company Number: PHEH2006US10962

PATIENT
  Age: 75 Year
  Sex: Male

DRUGS (3)
  1. EXJADE [Suspect]
     Indication: IRON OVERLOAD
     Dosage: 1000 MG,QD,ORAL
     Route: 048
     Dates: start: 20060601
  2. ATENOLOL [Concomitant]
  3. ANTIHYPERTENSIVES DRUGS (NO INGREDIENTS/SUBSTANCES) [Concomitant]

REACTIONS (1)
  - VISION BLURRED [None]
